FAERS Safety Report 9126698 (Version 1)
Quarter: 2013Q1

REPORT INFORMATION
  Report Type: Spontaneous
  Country: IN (occurrence: IN)
  Receive Date: 20130228
  Receipt Date: 20130228
  Transmission Date: 20140127
  Serious: Yes (Other)
  Sender: FDA-Public Use
  Company Number: IN-JNJFOC-20130212873

PATIENT
  Sex: 0

DRUGS (3)
  1. DOXORUBICIN [Suspect]
     Indication: BONE SARCOMA
     Route: 042
  2. CISPLATIN [Suspect]
     Indication: BONE SARCOMA
     Route: 065
  3. METHOTREXATE [Suspect]
     Indication: BONE SARCOMA
     Route: 065

REACTIONS (2)
  - Metastases to lung [Recovered/Resolved]
  - Off label use [Unknown]
